FAERS Safety Report 6305485-1 (Version None)
Quarter: 2009Q3

REPORT INFORMATION
  Report Type: 
  Country: None (occurrence: None)
  Receive Date: 20090807
  Receipt Date: 20090723
  Transmission Date: 20100115
  Serious: Yes (Death)
  Sender: FDA-Public Use
  Company Number: 2009AL005007

PATIENT
  Age: 30 Year
  Sex: Female

DRUGS (2)
  1. IRINOTECAN HCL [Suspect]
     Indication: COLORECTAL CANCER
     Dosage: 595 MG;IV
     Route: 042
     Dates: start: 20050824
  2. CETUXIMAB [Concomitant]

REACTIONS (1)
  - MUSCULOSKELETAL PAIN [None]
